FAERS Safety Report 25004506 (Version 1)
Quarter: 2025Q1

REPORT INFORMATION
  Report Type: Spontaneous
  Country: US (occurrence: US)
  Receive Date: 20250224
  Receipt Date: 20250224
  Transmission Date: 20250408
  Serious: Yes (Death, Life-Threatening, Hospitalization)
  Sender: DR REDDYS
  Company Number: None

PATIENT
  Age: 70 Year
  Sex: Male

DRUGS (1)
  1. LAMOTRIGINE [Suspect]
     Active Substance: LAMOTRIGINE
     Indication: Epilepsy

REACTIONS (10)
  - Haemophagocytic lymphohistiocytosis [Fatal]
  - Renal failure [Fatal]
  - Hepatic failure [Fatal]
  - Stress cardiomyopathy [Fatal]
  - Lactic acidosis [Fatal]
  - Cardiac arrest [Fatal]
  - Shock haemorrhagic [Fatal]
  - Subdural haematoma [Fatal]
  - Retroperitoneal haemorrhage [Fatal]
  - Encephalitis [Fatal]
